FAERS Safety Report 23969331 (Version 2)
Quarter: 2024Q3

REPORT INFORMATION
  Report Type: Spontaneous
  Country: US (occurrence: US)
  Receive Date: 20240612
  Receipt Date: 20240821
  Transmission Date: 20241016
  Serious: Yes (Hospitalization, Other)
  Sender: NOVO NORDISK
  Company Number: US-NOVOPROD-1234254

PATIENT
  Age: 34 Year
  Sex: Female

DRUGS (1)
  1. WEGOVY [Suspect]
     Active Substance: SEMAGLUTIDE
     Indication: Weight control
     Dosage: 0.25 MG, QW
     Route: 058
     Dates: start: 20240530, end: 20240530

REACTIONS (4)
  - Drug intolerance [Unknown]
  - Panic attack [Recovered/Resolved]
  - Blood potassium decreased [Unknown]
  - Malaise [Unknown]

NARRATIVE: CASE EVENT DATE: 20240531
